FAERS Safety Report 23159149 (Version 1)
Quarter: 2023Q4

REPORT INFORMATION
  Report Type: Spontaneous
  Country: US (occurrence: None)
  Receive Date: 20231107
  Receipt Date: 20231107
  Transmission Date: 20240110
  Serious: Yes (Death)
  Sender: FDA-Public Use
  Company Number: None

PATIENT
  Age: 62 Year
  Sex: Male

DRUGS (3)
  1. OPSUMIT [Suspect]
     Active Substance: MACITENTAN
     Indication: Pulmonary arterial hypertension
     Dosage: FREQUENCY : DAILY;?
     Route: 048
     Dates: start: 202309
  2. SILDENAFIL CITRATE [Concomitant]
     Active Substance: SILDENAFIL CITRATE
  3. C-TREPROSTINIL RM [Concomitant]

REACTIONS (1)
  - Renal failure [None]

NARRATIVE: CASE EVENT DATE: 20231102
